FAERS Safety Report 4639811-6 (Version None)
Quarter: 2005Q2

REPORT INFORMATION
  Report Type: 
  Country: None (occurrence: None)
  Receive Date: 20050420
  Receipt Date: 20050407
  Transmission Date: 20051028
  Serious: Yes (Hospitalization)
  Sender: FDA-Public Use
  Company Number: US-JNJFOC-20050401932

PATIENT
  Sex: Female
  Weight: 54.89 kg

DRUGS (6)
  1. REMICADE [Suspect]
     Route: 042
  2. REMICADE [Suspect]
     Indication: PSORIASIS
     Route: 042
  3. DIGITALIS CAP [Concomitant]
     Indication: TACHYCARDIA
  4. LANOXIN [Concomitant]
     Indication: TACHYCARDIA
  5. BETAPACE [Concomitant]
     Indication: TACHYCARDIA
  6. LIPITOR [Concomitant]

REACTIONS (6)
  - BRADYCARDIA [None]
  - FUNGAL OESOPHAGITIS [None]
  - HYPOTENSION [None]
  - MYALGIA [None]
  - RASH [None]
  - WHITE BLOOD CELL COUNT ABNORMAL [None]
